FAERS Safety Report 13268942 (Version 1)
Quarter: 2017Q1

REPORT INFORMATION
  Report Type: Spontaneous
  Country: US (occurrence: US)
  Receive Date: 20170224
  Receipt Date: 20170224
  Transmission Date: 20170428
  Serious: No
  Sender: FDA-Public Use
  Company Number: US-VERNALIS THERAPEUTICS, INC.-2016VRN00041

PATIENT
  Sex: Female

DRUGS (1)
  1. MOXATAG [Suspect]
     Active Substance: AMOXICILLIN

REACTIONS (1)
  - Drug hypersensitivity [Unknown]
